FAERS Safety Report 11063086 (Version 1)
Quarter: 2015Q2

REPORT INFORMATION
  Report Type: Spontaneous
  Country: US (occurrence: US)
  Receive Date: 20150424
  Receipt Date: 20150424
  Transmission Date: 20150821
  Serious: Yes (Hospitalization)
  Sender: FDA-Public Use
  Company Number: US-ACTELION-A-US2015-116488

PATIENT
  Age: 74 Year
  Sex: Female

DRUGS (9)
  1. FUROSEMIDE. [Concomitant]
     Active Substance: FUROSEMIDE
  2. XARELTO [Concomitant]
     Active Substance: RIVAROXABAN
  3. INDAPAMIDE. [Concomitant]
     Active Substance: INDAPAMIDE
  4. SPIRONOLACTONE. [Concomitant]
     Active Substance: SPIRONOLACTONE
  5. SOTALOL. [Concomitant]
     Active Substance: SOTALOL
  6. LEVOTHYROXINE [Concomitant]
     Active Substance: LEVOTHYROXINE
  7. ISONIAZID. [Concomitant]
     Active Substance: ISONIAZID
  8. OPSUMIT [Suspect]
     Active Substance: MACITENTAN
     Indication: PULMONARY HYPERTENSION
     Dosage: 10 MG, UNK
     Route: 048
     Dates: start: 20140807
  9. XIFAXAN [Concomitant]
     Active Substance: RIFAXIMIN

REACTIONS (1)
  - Renal disorder [Recovered/Resolved]

NARRATIVE: CASE EVENT DATE: 20150330
